FAERS Safety Report 12195343 (Version 1)
Quarter: 2016Q1

REPORT INFORMATION
  Report Type: Report from Study
  Country: GB (occurrence: GB)
  Receive Date: 20160321
  Receipt Date: 20160321
  Transmission Date: 20160526
  Serious: Yes (Hospitalization)
  Sender: FDA-Public Use
  Company Number: GB-ASTELLAS-2016US004355

PATIENT
  Age: 77 Year
  Sex: Male

DRUGS (1)
  1. ENZALUTAMIDE [Suspect]
     Active Substance: ENZALUTAMIDE
     Indication: HORMONE-REFRACTORY PROSTATE CANCER
     Dosage: 160 MG, DAILY
     Route: 048
     Dates: start: 20151008

REACTIONS (9)
  - Decreased appetite [Not Recovered/Not Resolved]
  - Fatigue [Recovered/Resolved with Sequelae]
  - Nausea [Not Recovered/Not Resolved]
  - Depression [Recovered/Resolved with Sequelae]
  - Hot flush [Not Recovered/Not Resolved]
  - Restless legs syndrome [Not Recovered/Not Resolved]
  - Depression [Recovered/Resolved with Sequelae]
  - Fatigue [Recovered/Resolved with Sequelae]
  - Fatigue [Not Recovered/Not Resolved]

NARRATIVE: CASE EVENT DATE: 20151104
